FAERS Safety Report 9387447 (Version 1)
Quarter: 2013Q3

REPORT INFORMATION
  Report Type: Spontaneous
  Country: US (occurrence: None)
  Receive Date: 20130702
  Receipt Date: 20130702
  Transmission Date: 20140515
  Serious: Yes (Hospitalization)
  Sender: FDA-Public Use
  Company Number: SYM-2013-05164

PATIENT
  Age: 84 Year
  Sex: Female

DRUGS (1)
  1. XENAZINE [Suspect]
     Indication: MEIGE^S SYNDROME
     Route: 048
     Dates: start: 201212

REACTIONS (1)
  - Influenza [None]
